FAERS Safety Report 6467575-2 (Version None)
Quarter: 2009Q4

REPORT INFORMATION
  Report Type: 
  Country: None (occurrence: None)
  Receive Date: 20091127
  Receipt Date: 20091118
  Transmission Date: 20100525
  Serious: Yes (Death, Hospitalization)
  Sender: FDA-Public Use
  Company Number: 2009-04385

PATIENT
  Age: 66 Year
  Sex: Male
  Weight: 44 kg

DRUGS (5)
  1. VELCADE [Suspect]
     Indication: MULTIPLE MYELOMA
     Dosage: 2 MG, INTRAVENOUS
     Route: 042
     Dates: start: 20090403, end: 20090731
  2. ALLOPURINOL [Concomitant]
  3. FAMOTIDINE (FAMOTIDNE) [Concomitant]
  4. AMLODIPINE BESYLATE [Concomitant]
  5. BACTRIM [Concomitant]

REACTIONS (10)
  - AMYLOIDOSIS [None]
  - COLITIS [None]
  - DECREASED APPETITE [None]
  - FEMUR FRACTURE [None]
  - GASTROINTESTINAL AMYLOIDOSIS [None]
  - ILEUS [None]
  - LARGE INTESTINAL ULCER [None]
  - PANNICULITIS [None]
  - SUBCUTANEOUS NODULE [None]
  - WEIGHT DECREASED [None]
